FAERS Safety Report 14627239 (Version 4)
Quarter: 2018Q1

REPORT INFORMATION
  Report Type: Spontaneous
  Country: IL (occurrence: IL)
  Receive Date: 20180312
  Receipt Date: 20180330
  Transmission Date: 20180509
  Serious: Yes (Other)
  Sender: FDA-Public Use
  Company Number: IL-PFIZER INC-2018101273

PATIENT
  Age: 65 Year
  Sex: Female
  Weight: 81 kg

DRUGS (3)
  1. AMIODARONE HCL [Suspect]
     Active Substance: AMIODARONE HYDROCHLORIDE
     Dosage: 200 MG, UNK
     Route: 065
  2. FUROSEMIDE /00032602/ [Concomitant]
     Active Substance: FUROSEMIDE
     Dosage: 40 MG, DAILY
  3. DIGOXIN. [Interacting]
     Active Substance: DIGOXIN
     Dosage: 0.25 MG, UNK (SIX DAYS A WEEK)
     Route: 065

REACTIONS (4)
  - Toxicity to various agents [Unknown]
  - Bradycardia [Unknown]
  - Hypothyroidism [Unknown]
  - Drug-disease interaction [Unknown]
